FAERS Safety Report 7408910-8 (Version None)
Quarter: 2011Q1

REPORT INFORMATION
  Report Type: 
  Country: None (occurrence: None)
  Receive Date: 20110301
  Receipt Date: 20101207
  Transmission Date: 20110831
  Serious: Yes (Disabling, Other)
  Sender: FDA-Public Use
  Company Number: ALA_01430_2010

PATIENT
  Sex: Male

DRUGS (1)
  1. REGLAN [Suspect]
     Indication: GASTROINTESTINAL DISORDER
     Dosage: DF ORAL
     Route: 048

REACTIONS (4)
  - INCORRECT DRUG ADMINISTRATION DURATION [None]
  - AKATHISIA [None]
  - DYSKINESIA [None]
  - TARDIVE DYSKINESIA [None]
